FAERS Safety Report 8221537-3 (Version None)
Quarter: 2012Q1

REPORT INFORMATION
  Report Type: 
  Country: None (occurrence: None)
  Receive Date: 20120315
  Receipt Date: 20120305
  Transmission Date: 20120608
  Serious: Yes (Other)
  Sender: FDA-Public Use
  Company Number: 2012SP000027

PATIENT
  Sex: Female

DRUGS (5)
  1. PEGASYS [Suspect]
     Indication: HEPATITIS C
     Dosage: 180 MCG;QW;SC
     Route: 058
     Dates: start: 20100901, end: 20110801
  2. RIBAVIRIN [Suspect]
     Indication: HEPATITIS C
     Dosage: 1000 MG;QD;PO   1000 MG;QD;PO
     Route: 048
     Dates: start: 20100902
  3. RIBAVIRIN [Suspect]
     Indication: HEPATITIS C
     Dosage: 1000 MG;QD;PO   1000 MG;QD;PO
     Route: 048
     Dates: end: 20110801
  4. PROZAC [Concomitant]
  5. LEVETIRACETAM [Concomitant]

REACTIONS (5)
  - SYNCOPE [None]
  - NERVOUSNESS [None]
  - RED BLOOD CELL COUNT DECREASED [None]
  - NAUSEA [None]
  - HYPERHIDROSIS [None]
